FAERS Safety Report 18457000 (Version 2)
Quarter: 2021Q3

REPORT INFORMATION
  Report Type: Report from Study
  Country: JP (occurrence: JP)
  Receive Date: 20201103
  Receipt Date: 20210705
  Transmission Date: 20211014
  Serious: Yes (Death)
  Sender: FDA-Public Use
  Company Number: JP-ASTRAZENECA-2020SF42979

PATIENT
  Age: 63 Year
  Sex: Male
  Weight: 65 kg

DRUGS (1)
  1. IMFINZI [Suspect]
     Active Substance: DURVALUMAB
     Indication: NON-SMALL CELL LUNG CANCER
     Route: 041
     Dates: start: 20200107, end: 20200124

REACTIONS (1)
  - Radiation pneumonitis [Fatal]

NARRATIVE: CASE EVENT DATE: 20200205
